FAERS Safety Report 7176717-5 (Version None)
Quarter: 2010Q4

REPORT INFORMATION
  Report Type: 
  Country: None (occurrence: None)
  Receive Date: 20101220
  Receipt Date: 20101216
  Transmission Date: 20110411
  Serious: Yes (Other)
  Sender: FDA-Public Use
  Company Number: DE-PFIZER INC-2010173671

PATIENT
  Sex: Female

DRUGS (2)
  1. XANAX [Suspect]
     Indication: ANXIETY
     Dosage: 0.5 MG, DAILY
  2. XANAX [Suspect]
     Indication: PANIC DISORDER

REACTIONS (4)
  - FATIGUE [None]
  - FIBROMYALGIA [None]
  - GENERALISED ANXIETY DISORDER [None]
  - PARAESTHESIA [None]
